FAERS Safety Report 15074474 (Version 1)
Quarter: 2018Q2

REPORT INFORMATION
  Report Type: Spontaneous
  Country: US (occurrence: US)
  Receive Date: 20180627
  Receipt Date: 20180627
  Transmission Date: 20180711
  Serious: Yes (Other)
  Sender: FDA-Public Use
  Company Number: US-SAOL THERAPEUTICS-2018SAO00446

PATIENT
  Age: 61 Year
  Sex: Male
  Weight: 110.2 kg

DRUGS (21)
  1. BACLOFEN. [Suspect]
     Active Substance: BACLOFEN
     Indication: PAIN
     Route: 037
  2. METOPROLOL SUCCINATE ER [Concomitant]
     Active Substance: METOPROLOL SUCCINATE
  3. DILAUDID [Suspect]
     Active Substance: HYDROMORPHONE HYDROCHLORIDE
     Dosage: 3.796 MG, \DAY
     Route: 037
     Dates: end: 201304
  4. FLUTICASONE NASAL SPRAY [Concomitant]
     Active Substance: FLUTICASONE
     Route: 045
  5. LOSARTAN. [Concomitant]
     Active Substance: LOSARTAN
     Dosage: 1 TABLETS, 1X/DAY
  6. QUETIAPINE. [Concomitant]
     Active Substance: QUETIAPINE
     Dosage: UNK
  7. QUETIAPINE. [Concomitant]
     Active Substance: QUETIAPINE
  8. BACLOFEN. [Suspect]
     Active Substance: BACLOFEN
     Indication: BACK PAIN
  9. LORAZEPAM. [Concomitant]
     Active Substance: LORAZEPAM
     Dosage: 1 TABLETS, AS NEEDED
  10. VENALFEXINE ER [Concomitant]
  11. CELECOXIB. [Concomitant]
     Active Substance: CELECOXIB
  12. ESCITALOPRAM [Concomitant]
     Active Substance: ESCITALOPRAM OXALATE
  13. VENALFEXINE ER [Concomitant]
  14. IBUPROFEN. [Concomitant]
     Active Substance: IBUPROFEN
  15. LITHIUM. [Concomitant]
     Active Substance: LITHIUM
  16. QUETIAPINE. [Concomitant]
     Active Substance: QUETIAPINE
     Dosage: UNK
  17. GABAPENTIN. [Concomitant]
     Active Substance: GABAPENTIN
  18. VENTOLIN HFA [Concomitant]
     Active Substance: ALBUTEROL SULFATE
     Dosage: UNK
  19. CLONIDINE. [Suspect]
     Active Substance: CLONIDINE
     Dosage: 109.49 ?G, \DAY
     Route: 037
     Dates: end: 201304
  20. AMLODIPINE [Concomitant]
     Active Substance: AMLODIPINE BESYLATE
  21. PANTOPRAZOLE [Concomitant]
     Active Substance: PANTOPRAZOLE
     Route: 048

REACTIONS (5)
  - Device alarm issue [Unknown]
  - Tardive dyskinesia [Unknown]
  - Off label use [Recovered/Resolved]
  - Seizure [Unknown]
  - Pain [Unknown]

NARRATIVE: CASE EVENT DATE: 20180306
